FAERS Safety Report 11513600 (Version 1)
Quarter: 2015Q3

REPORT INFORMATION
  Report Type: Spontaneous
  Country: US (occurrence: US)
  Receive Date: 20150903
  Receipt Date: 20150903
  Transmission Date: 20151125
  Serious: No
  Sender: FDA-Public Use
  Company Number: US-ELI_LILLY_AND_COMPANY-US201207007737

PATIENT
  Age: 62 Year
  Sex: Female

DRUGS (5)
  1. AMBIEN [Suspect]
     Active Substance: ZOLPIDEM TARTRATE
  2. XANAX [Concomitant]
     Active Substance: ALPRAZOLAM
     Dosage: UNK, PRN
  3. PROTONIX [Concomitant]
     Active Substance: PANTOPRAZOLE SODIUM
  4. CYMBALTA [Suspect]
     Active Substance: DULOXETINE HYDROCHLORIDE
     Indication: FIBROMYALGIA
     Dosage: 30 MG, QD
     Dates: start: 201205
  5. CYMBALTA [Suspect]
     Active Substance: DULOXETINE HYDROCHLORIDE
     Dosage: 60 MG, UNK
     Dates: start: 20121008

REACTIONS (21)
  - Agitation [Not Recovered/Not Resolved]
  - Muscle spasms [Unknown]
  - Somnolence [Unknown]
  - Muscle twitching [Recovered/Resolved]
  - Stress [Not Recovered/Not Resolved]
  - Weight increased [Unknown]
  - Feeling abnormal [Unknown]
  - Pain [Unknown]
  - Drug effect decreased [Unknown]
  - Drug administration error [Unknown]
  - Disturbance in attention [Not Recovered/Not Resolved]
  - Sleep disorder [Not Recovered/Not Resolved]
  - Anxiety [Not Recovered/Not Resolved]
  - Pruritus [Recovered/Resolved]
  - Urinary incontinence [Unknown]
  - Muscle spasms [Recovered/Resolved]
  - Discomfort [Not Recovered/Not Resolved]
  - Arthropathy [Unknown]
  - Fall [Recovered/Resolved]
  - Diarrhoea [Unknown]
  - Hypotonia [Not Recovered/Not Resolved]
